FAERS Safety Report 4503301-1 (Version None)
Quarter: 2004Q4

REPORT INFORMATION
  Report Type: 
  Country: None (occurrence: None)
  Receive Date: 20041112
  Receipt Date: 20041026
  Transmission Date: 20050328
  Serious: Yes (Other)
  Sender: FDA-Public Use
  Company Number: 9183

PATIENT
  Sex: Female

DRUGS (1)
  1. METHOTREXATE [Suspect]
     Dosage: 15 MG NA IT
     Route: 037

REACTIONS (2)
  - CONVULSION [None]
  - PNEUMONIA KLEBSIELLA [None]
